FAERS Safety Report 24114263 (Version 2)
Quarter: 2024Q3

REPORT INFORMATION
  Report Type: Spontaneous
  Country: US (occurrence: US)
  Receive Date: 20240720
  Receipt Date: 20240726
  Transmission Date: 20241017
  Serious: No
  Sender: AMGEN
  Company Number: US-AMGEN-USASP2024141256

PATIENT
  Age: 60 Year
  Sex: Male
  Weight: 110 kg

DRUGS (1)
  1. XGEVA [Suspect]
     Active Substance: DENOSUMAB
     Indication: Plasma cell myeloma
     Dosage: 120 MILLIGRAM
     Route: 065

REACTIONS (1)
  - Product administration interrupted [Unknown]

NARRATIVE: CASE EVENT DATE: 20240716
